FAERS Safety Report 5333887-9 (Version None)
Quarter: 2007Q1

REPORT INFORMATION
  Report Type: 
  Country: None (occurrence: None)
  Receive Date: 20070306
  Receipt Date: 20060818
  Transmission Date: 20070707
  Serious: Yes (Hospitalization)
  Sender: FDA-Public Use
  Company Number: A03200605313

PATIENT
  Age: 80 Year
  Sex: Female

DRUGS (2)
  1. PLAVIX [Suspect]
     Indication: CEREBROVASCULAR ACCIDENT
     Dosage: ORAL
     Route: 048
     Dates: start: 20040101, end: 20040101
  2. ANTIBIOTIC [Concomitant]

REACTIONS (3)
  - HAEMATURIA [None]
  - HAEMOGLOBIN DECREASED [None]
  - PYREXIA [None]
